FAERS Safety Report 12872506 (Version 2)
Quarter: 2016Q4

REPORT INFORMATION
  Report Type: Spontaneous
  Country: CA (occurrence: CA)
  Receive Date: 20161021
  Receipt Date: 20161227
  Transmission Date: 20170207
  Serious: Yes (Other)
  Sender: FDA-Public Use
  Company Number: CA-ORION CORPORATION ORION PHARMA-TREX2016-2029

PATIENT
  Age: 66 Year
  Sex: Female
  Weight: 104.5 kg

DRUGS (2)
  1. STELARA [Concomitant]
     Active Substance: USTEKINUMAB
     Route: 065
     Dates: end: 20160901
  2. METHOTREXATE (TRADE NAME UNKNOWN) [Suspect]
     Active Substance: METHOTREXATE
     Route: 065
     Dates: start: 201601

REACTIONS (2)
  - Hypertension [Not Recovered/Not Resolved]
  - Diabetes mellitus [Not Recovered/Not Resolved]
